FAERS Safety Report 7732080-X (Version None)
Quarter: 2011Q3

REPORT INFORMATION
  Report Type: 
  Country: None (occurrence: None)
  Receive Date: 20110906
  Receipt Date: 20110801
  Transmission Date: 20111222
  Serious: No
  Sender: FDA-Public Use
  Company Number: US-AMGEN-USASP2011038873

PATIENT
  Age: 76 Year
  Sex: Female

DRUGS (6)
  1. EFFEXOR [Concomitant]
  2. CALCIUM CARBONATE [Concomitant]
  3. LANSOPRAZOLE [Concomitant]
  4. VITAMIN D [Concomitant]
  5. CENTRUM SILVER                     /01292501/ [Concomitant]
  6. PROLIA [Suspect]
     Indication: OSTEOPOROSIS POSTMENOPAUSAL
     Dosage: UNK
     Dates: start: 20101201

REACTIONS (4)
  - LUNG INFECTION [None]
  - BRONCHITIS [None]
  - SINUSITIS [None]
  - CYSTITIS [None]
